FAERS Safety Report 8953672 (Version 1)
Quarter: 2012Q4

REPORT INFORMATION
  Report Type: 
  Country: DK (occurrence: GB)
  Receive Date: 20121206
  Receipt Date: 20121206
  Transmission Date: 20130627
  Serious: Yes (Hospitalization)
  Sender: FDA-Public Use
  Company Number: GB-FRI-1000040893

PATIENT
  Age: 52 Year
  Sex: Male
  Weight: 142 kg

DRUGS (11)
  1. CITALOPRAM [Suspect]
     Indication: ANXIETY
     Dosage: 40 mg
     Route: 048
     Dates: start: 20120704, end: 20121115
  2. CITALOPRAM [Suspect]
     Indication: SLEEP DISORDER
  3. ASPIRIN [Concomitant]
  4. ATORVASTATIN [Concomitant]
  5. EZETIMIBE [Concomitant]
  6. FELODIPINE [Concomitant]
  7. GLICLAZIDE [Concomitant]
  8. METFOREM [Concomitant]
  9. SALBUTAMOL [Concomitant]
  10. SITAGLIPTIN [Concomitant]
  11. TELMISARTAN [Concomitant]

REACTIONS (5)
  - Hyponatraemia [Not Recovered/Not Resolved]
  - Confusional state [Unknown]
  - Lethargy [Unknown]
  - Weight increased [Unknown]
  - Off label use [Unknown]
